FAERS Safety Report 6976173-3 (Version None)
Quarter: 2010Q3

REPORT INFORMATION
  Report Type: 
  Country: None (occurrence: None)
  Receive Date: 20100910
  Receipt Date: 20090422
  Transmission Date: 20110219
  Serious: No
  Sender: FDA-Public Use
  Company Number: US-WYE-H09097109

PATIENT

DRUGS (2)
  1. PRISTIQ [Suspect]
     Dosage: UNKNOWN
  2. MESCALINE [Interacting]
     Dosage: UNKNOWN

REACTIONS (2)
  - DRUG INTERACTION [None]
  - MANIA [None]
